FAERS Safety Report 9698762 (Version 3)
Quarter: 2015Q3

REPORT INFORMATION
  Report Type: Spontaneous
  Country: US (occurrence: US)
  Receive Date: 20131120
  Receipt Date: 20150817
  Transmission Date: 20151125
  Serious: No
  Sender: FDA-Public Use
  Company Number: US-GILEAD-2013-0088258

PATIENT
  Age: 74 Year
  Sex: Female

DRUGS (1)
  1. LETAIRIS [Suspect]
     Active Substance: AMBRISENTAN
     Indication: DYSPNOEA
     Dosage: 5 MG, QD
     Route: 048
     Dates: start: 20120612

REACTIONS (2)
  - Dyspnoea [Unknown]
  - Fatigue [Unknown]
